FAERS Safety Report 5118190-4 (Version None)
Quarter: 2006Q3

REPORT INFORMATION
  Report Type: 
  Country: None (occurrence: None)
  Receive Date: 20060928
  Receipt Date: 20060928
  Transmission Date: 20061208
  Serious: Yes (Hospitalization)
  Sender: FDA-Public Use
  Company Number: None

PATIENT
  Age: 54 Year
  Sex: Male
  Weight: 64.4 kg

DRUGS (10)
  1. VANCOMYCIN [Suspect]
     Indication: ABSCESS NECK
     Dosage: 1250MG EVERY 12 HOURS IV
     Route: 042
     Dates: start: 20060811, end: 20060818
  2. VANCOMYCIN [Suspect]
     Indication: CELLULITIS
     Dosage: 1250MG EVERY 12 HOURS IV
     Route: 042
     Dates: start: 20060811, end: 20060818
  3. ENOXAPARIN SODIUM [Concomitant]
  4. PROCHLOROPERAZINE [Concomitant]
  5. FENTANYL [Concomitant]
  6. ONDANSETRON [Concomitant]
  7. PANTOPRAZOLE SODIUM [Concomitant]
  8. EZETIMIBE/SIMVASTATIN [Concomitant]
  9. MORPHINE [Concomitant]
  10. ERTAPENEM [Concomitant]

REACTIONS (4)
  - ABSCESS [None]
  - ANTIBIOTIC LEVEL ABOVE THERAPEUTIC [None]
  - RENAL FAILURE ACUTE [None]
  - RENAL TUBULAR NECROSIS [None]
